FAERS Safety Report 7779249-6 (Version None)
Quarter: 2011Q3

REPORT INFORMATION
  Report Type: 
  Country: None (occurrence: None)
  Receive Date: 20110926
  Receipt Date: 20110915
  Transmission Date: 20111222
  Serious: Yes (Other)
  Sender: FDA-Public Use
  Company Number: US-ASTRAZENECA-2011SE45155

PATIENT
  Age: 54 Year
  Sex: Female

DRUGS (4)
  1. ARIMIDEX [Suspect]
     Route: 048
  2. CRESTOR [Suspect]
     Route: 048
  3. LIPITOR [Concomitant]
  4. TAMOXIFEN CITRATE [Suspect]
     Route: 048

REACTIONS (14)
  - MALAISE [None]
  - INTERVERTEBRAL DISC PROTRUSION [None]
  - NERVE INJURY [None]
  - INTERVERTEBRAL DISC DISORDER [None]
  - OSTEOARTHRITIS [None]
  - LIVER INJURY [None]
  - SCOLIOSIS [None]
  - BLOOD CHOLESTEROL INCREASED [None]
  - FIBROMYALGIA [None]
  - NEOPLASM MALIGNANT [None]
  - ACTIVITIES OF DAILY LIVING IMPAIRED [None]
  - BACK DISORDER [None]
  - SCIATIC NERVE INJURY [None]
  - RENAL INJURY [None]
